FAERS Safety Report 9641353 (Version 1)
Quarter: 2013Q4

REPORT INFORMATION
  Report Type: Spontaneous
  Country: IN (occurrence: None)
  Receive Date: 20131021
  Receipt Date: 20131021
  Transmission Date: 20140711
  Serious: Yes (Hospitalization, Other)
  Sender: FDA-Public Use
  Company Number: AUR-APL-2013-08452

PATIENT
  Age: 38 Year
  Sex: Female

DRUGS (4)
  1. LAMIVUDINE [Suspect]
     Indication: ANTIRETROVIRAL THERAPY
     Dates: start: 200908
  2. TENOFOVIR [Suspect]
     Indication: ANTIRETROVIRAL THERAPY
     Dates: start: 200908
  3. LOPINAVIR (LOPINAVIR) [Suspect]
     Indication: ANTIRETROVIRAL THERAPY
  4. RITONAVIR (RITONAVIR) [Suspect]
     Indication: ANTIRETROVIRAL THERAPY

REACTIONS (11)
  - Oesophageal candidiasis [None]
  - Headache [None]
  - Dizziness [None]
  - Vomiting projectile [None]
  - Somnolence [None]
  - Cognitive disorder [None]
  - Papilloedema [None]
  - Ataxia [None]
  - Intention tremor [None]
  - Cerebellar syndrome [None]
  - Progressive multifocal leukoencephalopathy [None]
